FAERS Safety Report 7765847-2 (Version None)
Quarter: 2011Q3

REPORT INFORMATION
  Report Type: 
  Country: None (occurrence: None)
  Receive Date: 20110921
  Receipt Date: 20110906
  Transmission Date: 20111222
  Serious: Yes (Death, Hospitalization)
  Sender: FDA-Public Use
  Company Number: PL-WATSON-2011-14667

PATIENT
  Age: 12 Year
  Sex: Male

DRUGS (2)
  1. TACROLIMUS [Suspect]
     Indication: TRANSPLANT REJECTION
     Dosage: 4 MG, DAILY FROM DAY +85 TO +88
     Route: 042
  2. CYCLOSPORINE [Suspect]
     Indication: TRANSPLANT REJECTION
     Dosage: UNK

REACTIONS (3)
  - MULTI-ORGAN FAILURE [None]
  - CEREBRAL HAEMORRHAGE [None]
  - DRUG INEFFECTIVE [None]
